FAERS Safety Report 15179666 (Version 1)
Quarter: 2018Q3

REPORT INFORMATION
  Report Type: Spontaneous
  Country: ES (occurrence: ES)
  Receive Date: 20180723
  Receipt Date: 20180723
  Transmission Date: 20181010
  Serious: Yes (Hospitalization, Other)
  Sender: FDA-Public Use
  Company Number: ES-LUPIN PHARMACEUTICALS INC.-2018-05083

PATIENT
  Age: 32 Week
  Sex: Male

DRUGS (2)
  1. AMLODIPINE [Concomitant]
     Active Substance: AMLODIPINE BESYLATE
     Indication: ESSENTIAL HYPERTENSION
     Dosage: UNK UNK, QD
     Route: 064
  2. OLMESARTAN [Suspect]
     Active Substance: OLMESARTAN
     Indication: ESSENTIAL HYPERTENSION
     Dosage: UNK UNK, QD
     Route: 064

REACTIONS (7)
  - Hypotension [Recovering/Resolving]
  - Potter^s syndrome [Recovering/Resolving]
  - Foetal exposure during pregnancy [Unknown]
  - Anuria [Recovering/Resolving]
  - Renal failure [Recovering/Resolving]
  - Pneumothorax [Recovering/Resolving]
  - Pulmonary hypoplasia [Recovering/Resolving]
